FAERS Safety Report 5102628-2 (Version None)
Quarter: 2006Q3

REPORT INFORMATION
  Report Type: 
  Country: None (occurrence: None)
  Receive Date: 20060912
  Receipt Date: 20060502
  Transmission Date: 20061208
  Serious: Yes (Other)
  Sender: FDA-Public Use
  Company Number: 2006UW08464

PATIENT
  Age: 69 Year
  Sex: Female
  Weight: 59.4 kg

DRUGS (5)
  1. ARIMIDEX [Suspect]
     Indication: BREAST CANCER
     Route: 048
  2. FOSAMAX [Concomitant]
     Dates: end: 20051101
  3. ZETIA [Concomitant]
  4. AREDIA [Concomitant]
  5. ZOMETA [Concomitant]

REACTIONS (8)
  - ARTHRALGIA [None]
  - ARTHRITIS [None]
  - HYPERCHOLESTEROLAEMIA [None]
  - JAW DISORDER [None]
  - OSTEONECROSIS [None]
  - OSTEOPOROSIS [None]
  - PAIN IN JAW [None]
  - TOOTH DISORDER [None]
